FAERS Safety Report 6467633-2 (Version None)
Quarter: 2009Q4

REPORT INFORMATION
  Report Type: 
  Country: None (occurrence: None)
  Receive Date: 20091202
  Receipt Date: 20091120
  Transmission Date: 20100525
  Serious: Yes (Other)
  Sender: FDA-Public Use
  Company Number: PHEH2009US06355

PATIENT
  Age: 90 Year
  Sex: Male

DRUGS (3)
  1. RECLAST [Suspect]
     Indication: PROPHYLAXIS
     Dosage: UNK, ONCE/SINGLE USE
     Dates: start: 20090420, end: 20090420
  2. PROSCAR [Concomitant]
  3. HYTRIN [Concomitant]

REACTIONS (8)
  - ACTIVITIES OF DAILY LIVING IMPAIRED [None]
  - ASTHENIA [None]
  - BEDRIDDEN [None]
  - BONE PAIN [None]
  - CHILLS [None]
  - GENERAL PHYSICAL HEALTH DETERIORATION [None]
  - VIRAL INFECTION [None]
  - WEIGHT DECREASED [None]
